FAERS Safety Report 14989312 (Version 1)
Quarter: 2018Q2

REPORT INFORMATION
  Report Type: Spontaneous
  Country: US (occurrence: US)
  Receive Date: 20180520
  Receipt Date: 20180520
  Transmission Date: 20180711
  Serious: Yes (Disabling)
  Sender: FDA-Public Use
  Company Number: None

PATIENT
  Age: 79 Year
  Sex: Male
  Weight: 85.5 kg

DRUGS (17)
  1. AMLODIPINE [Concomitant]
     Active Substance: AMLODIPINE BESYLATE
  2. PANTOPRAZOLE [Concomitant]
     Active Substance: PANTOPRAZOLE
  3. SIMVASTATIN. [Concomitant]
     Active Substance: SIMVASTATIN
  4. LOPERAMIDE [Concomitant]
     Active Substance: LOPERAMIDE
  5. MULTIVITAMIN [Concomitant]
     Active Substance: VITAMINS
  6. CIPROFLOXACIN. [Suspect]
     Active Substance: CIPROFLOXACIN
     Indication: URINARY TRACT INFECTION
     Dosage: ?          QUANTITY:1 TABLET(S);?
     Route: 048
     Dates: start: 20180501, end: 20180501
  7. LORATADINE. [Concomitant]
     Active Substance: LORATADINE
  8. VITAMIN D3 [Concomitant]
     Active Substance: CHOLECALCIFEROL
  9. ATENOLOL. [Concomitant]
     Active Substance: ATENOLOL
  10. LOSARTAN. [Concomitant]
     Active Substance: LOSARTAN
  11. LUNESTA [Concomitant]
     Active Substance: ESZOPICLONE
  12. BACTRIM [Concomitant]
     Active Substance: SULFAMETHOXAZOLE\TRIMETHOPRIM
  13. VITAMIN B12 [Concomitant]
     Active Substance: CYANOCOBALAMIN
  14. TESTOSTERONE. [Concomitant]
     Active Substance: TESTOSTERONE
  15. VITAMIN C [Concomitant]
     Active Substance: ASCORBIC ACID
  16. CALCIUM [Concomitant]
     Active Substance: CALCIUM
  17. ASA [Concomitant]
     Active Substance: ASPIRIN

REACTIONS (3)
  - Hypoaesthesia [None]
  - Pain [None]
  - Paraesthesia [None]
